FAERS Safety Report 9121197 (Version 2)
Quarter: 2013Q1

REPORT INFORMATION
  Report Type: Spontaneous
  Country: JP (occurrence: JP)
  Receive Date: 20130225
  Receipt Date: 20130228
  Transmission Date: 20140127
  Serious: Yes (Other)
  Sender: FDA-Public Use
  Company Number: JP-BRISTOL-MYERS SQUIBB COMPANY-17408204

PATIENT
  Age: 1 Day
  Sex: Male
  Weight: 2.78 kg

DRUGS (1)
  1. ABILIFY TABS [Suspect]
     Dosage: ABILIFY TABS 6MG?29NV06:12MG?02JUN10:9MG?30MAR11:6MG
     Route: 064
     Dates: end: 20121111

REACTIONS (1)
  - Foetal distress syndrome [Recovered/Resolved]
